FAERS Safety Report 5857536-6 (Version None)
Quarter: 2008Q3

REPORT INFORMATION
  Report Type: 
  Country: None (occurrence: None)
  Receive Date: 20080826
  Receipt Date: 20080813
  Transmission Date: 20090109
  Serious: Yes (Life-Threatening)
  Sender: FDA-Public Use
  Company Number: US-PFIZER INC-2005037947

PATIENT
  Sex: Male
  Weight: 86.2 kg

DRUGS (3)
  1. SUTENT [Suspect]
     Indication: GASTROINTESTINAL STROMAL TUMOUR
     Dosage: DAILY DOSE:50MG-FREQ:QD  INTERVAL:  28 DAY ON 2 WEEKS OFF
     Route: 048
     Dates: start: 20040909, end: 20050209
  2. TYLENOL (CAPLET) [Concomitant]
     Dosage: FREQ:UNKNOWN
     Route: 065
  3. AMBIEN [Concomitant]
     Dosage: FREQ:UNKNOWN
     Route: 065

REACTIONS (1)
  - CARDIOMYOPATHY [None]
